FAERS Safety Report 7730119-9 (Version None)
Quarter: 2011Q3

REPORT INFORMATION
  Report Type: 
  Country: None (occurrence: None)
  Receive Date: 20110906
  Receipt Date: 20110829
  Transmission Date: 20111222
  Serious: Yes (Life-Threatening, Hospitalization)
  Sender: FDA-Public Use
  Company Number: PHHY2011BR50780

PATIENT
  Sex: Male

DRUGS (3)
  1. GLUCOFORMIN [Concomitant]
     Dosage: 1 DF, DAILY
  2. METFORMIN HCL [Concomitant]
     Indication: DIABETES MELLITUS
     Dosage: 2 DF, DAILY
  3. EXFORGE [Suspect]
     Dosage: UNK UKN, UNK

REACTIONS (3)
  - COMA [None]
  - BLOOD PRESSURE INCREASED [None]
  - PNEUMONIA [None]
